FAERS Safety Report 4957360-2 (Version None)
Quarter: 2006Q1

REPORT INFORMATION
  Report Type: 
  Country: None (occurrence: None)
  Receive Date: 20060327
  Receipt Date: 20060321
  Transmission Date: 20060701
  Serious: Yes (Hospitalization)
  Sender: FDA-Public Use
  Company Number: 200610305BVD

PATIENT
  Age: 69 Year
  Sex: Female

DRUGS (4)
  1. SORAFENIB [Suspect]
     Indication: RENAL CELL CARCINOMA STAGE UNSPECIFIED
     Dosage: 400 MG, BID, ORAL
     Route: 048
     Dates: start: 20060217, end: 20060227
  2. NEBILET [Concomitant]
  3. ETHINYLESTRADIOL W/NORETHINDRONE [Concomitant]
  4. L-THYROXINE [Concomitant]

REACTIONS (6)
  - ANGIOPATHY [None]
  - C-REACTIVE PROTEIN INCREASED [None]
  - CEREBRAL INFARCTION [None]
  - CSF MEASLES ANTIBODY POSITIVE [None]
  - LACUNAR INFARCTION [None]
  - SKIN EXFOLIATION [None]
